FAERS Safety Report 5988560-0 (Version None)
Quarter: 2008Q4

REPORT INFORMATION
  Report Type: 
  Country: None (occurrence: None)
  Receive Date: 20081210
  Receipt Date: 20080416
  Transmission Date: 20090506
  Serious: No
  Sender: FDA-Public Use
  Company Number: US-BAYER-200811726BCC

PATIENT
  Age: 18 Year
  Sex: Female
  Weight: 91 kg

DRUGS (1)
  1. ALEVE (CAPLET) [Suspect]
     Indication: DRUG USE FOR UNKNOWN INDICATION
     Dosage: AS USED: 1760 MG  UNIT DOSE: 220 MG
     Route: 048
     Dates: start: 20080416

REACTIONS (4)
  - BODY TEMPERATURE INCREASED [None]
  - HYPERHIDROSIS [None]
  - MALAISE [None]
  - PYREXIA [None]
